FAERS Safety Report 6479889-0 (Version None)
Quarter: 2009Q4

REPORT INFORMATION
  Report Type: 
  Country: None (occurrence: None)
  Receive Date: 20091208
  Receipt Date: 20091103
  Transmission Date: 20100525
  Serious: Yes (Other)
  Sender: FDA-Public Use
  Company Number: US-SANOFI-AVENTIS-200917494US

PATIENT
  Age: 31 Year
  Sex: Female
  Weight: 63.64 kg

DRUGS (5)
  1. ENOXAPARIN SODIUM [Suspect]
     Indication: DEEP VEIN THROMBOSIS
  2. ENOXAPARIN SODIUM [Suspect]
  3. ENOXAPARIN SODIUM [Suspect]
     Dates: start: 20090818, end: 20090826
  4. ENOXAPARIN SODIUM [Suspect]
     Dates: start: 20090818, end: 20090826
  5. ALL OTHER THERAPEUTIC PRODUCTS [Concomitant]
     Indication: VITAMIN SUPPLEMENTATION
     Dosage: DOSE AS USED: UNK
     Dates: start: 20090801, end: 20090801

REACTIONS (3)
  - ABORTION SPONTANEOUS [None]
  - DRUG EXPOSURE DURING PREGNANCY [None]
  - VAGINAL HAEMORRHAGE [None]
